FAERS Safety Report 12680641 (Version 3)
Quarter: 2016Q3

REPORT INFORMATION
  Report Type: Spontaneous
  Country: US (occurrence: US)
  Receive Date: 20160824
  Receipt Date: 20160915
  Transmission Date: 20161109
  Serious: No
  Sender: FDA-Public Use
  Company Number: US-ACTELION-A-US2016-140949

PATIENT
  Age: 83 Year
  Sex: Female
  Weight: 83.9 kg

DRUGS (10)
  1. UPTRAVI [Suspect]
     Active Substance: SELEXIPAG
     Indication: PULMONARY ARTERIAL HYPERTENSION
     Dosage: 200 MCG, BID
     Route: 048
     Dates: start: 20160801
  2. UPTRAVI [Suspect]
     Active Substance: SELEXIPAG
     Dosage: 800 UNK, UNK
     Route: 048
     Dates: start: 20160905
  3. DILTIAZEM. [Concomitant]
     Active Substance: DILTIAZEM
  4. UPTRAVI [Suspect]
     Active Substance: SELEXIPAG
     Dosage: 1000 UNK, UNK
     Route: 048
     Dates: start: 20160904
  5. SPIRONOLACTONE. [Concomitant]
     Active Substance: SPIRONOLACTONE
  6. UPTRAVI [Suspect]
     Active Substance: SELEXIPAG
     Dosage: 400 MCG, BID
     Route: 048
  7. ADCIRCA [Concomitant]
     Active Substance: TADALAFIL
  8. WARFARIN [Concomitant]
     Active Substance: WARFARIN
  9. REVATIO [Concomitant]
     Active Substance: SILDENAFIL CITRATE
  10. TREPROSTINIL DIOLAMIN [Concomitant]
     Active Substance: TREPROSTINIL DIOLAMINE

REACTIONS (15)
  - Weight increased [Unknown]
  - Asthenia [Unknown]
  - Nausea [Unknown]
  - Decreased appetite [Unknown]
  - Diarrhoea [Unknown]
  - Headache [Unknown]
  - Pain in extremity [Unknown]
  - International normalised ratio increased [Unknown]
  - Abdominal distension [Unknown]
  - Oedema peripheral [Unknown]
  - Pyrexia [Unknown]
  - Micturition disorder [Unknown]
  - Fluid retention [Unknown]
  - Loss of consciousness [Unknown]
  - Dizziness [Unknown]

NARRATIVE: CASE EVENT DATE: 20160815
